FAERS Safety Report 6667149-4 (Version None)
Quarter: 2010Q2

REPORT INFORMATION
  Report Type: 
  Country: None (occurrence: None)
  Receive Date: 20100405
  Receipt Date: 20100325
  Transmission Date: 20101027
  Serious: Yes (Hospitalization)
  Sender: FDA-Public Use
  Company Number: FR-JNJFOC-20100302604

PATIENT
  Age: 55 Year
  Sex: Female

DRUGS (5)
  1. RISPERDAL [Suspect]
     Indication: DELIRIUM
     Route: 048
  2. RISPERDAL [Suspect]
     Route: 048
  3. NEULEPTIL [Suspect]
     Indication: DRUG USE FOR UNKNOWN INDICATION
     Route: 048
  4. ATARAX [Concomitant]
     Indication: DRUG USE FOR UNKNOWN INDICATION
     Route: 048
  5. TRANXENE [Concomitant]
     Indication: DRUG USE FOR UNKNOWN INDICATION
     Route: 048

REACTIONS (1)
  - BRADYCARDIA [None]
